FAERS Safety Report 24925727 (Version 5)
Quarter: 2025Q4

REPORT INFORMATION
  Report Type: Spontaneous
  Country: JP (occurrence: JP)
  Receive Date: 20250204
  Receipt Date: 20251201
  Transmission Date: 20260118
  Serious: Yes (Hospitalization, Other)
  Sender: ASTELLAS
  Company Number: JP-ASTELLAS-2025-AER-005587

PATIENT
  Age: 65 Year
  Sex: Male

DRUGS (24)
  1. PADCEV [Suspect]
     Active Substance: ENFORTUMAB VEDOTIN-EJFV
     Indication: Metastatic carcinoma of the bladder
     Route: 065
     Dates: start: 202404, end: 202412
  2. GEMCITABINE [Suspect]
     Active Substance: GEMCITABINE
     Indication: Metastatic carcinoma of the bladder
     Dosage: ADMINISTERED IN 30 MINUTES, THE ROTATION WAS 30 MINUTES OF GEMCITABINE?AND 1 HOUR OF CARBOPLATIN IN
     Route: 042
     Dates: start: 202404
  3. CARBOPLATIN [Suspect]
     Active Substance: CARBOPLATIN
     Indication: Metastatic carcinoma of the bladder
     Dosage: ADMINISTERED IN AN HOUR, THE ROTATION WAS 30 MINUTES OF GEMCITABINE?AND 1 HOUR OF CARBOPLATIN IN WEE
     Route: 042
     Dates: start: 202404
  4. AVELUMAB [Suspect]
     Active Substance: AVELUMAB
     Indication: Metastatic carcinoma of the bladder
     Route: 065
     Dates: start: 2024
  5. 5% glucose solution [Concomitant]
     Indication: Product used for unknown indication
     Dosage: ADMINISTERED IN AN HOUR
     Route: 065
  6. ISOTONIC SODIUM CHLORIDE SOLUTION [Concomitant]
     Active Substance: SODIUM CHLORIDE
     Indication: Product used for unknown indication
     Dosage: 100ML WAS ADMINISTERED IN 30 MINUTES, WITH 100ML POURED IN AT THE END.
     Route: 065
  7. Calonal tablets 200 [Concomitant]
     Indication: Analgesic therapy
     Dosage: 15 MINUTES AFTER EACH MEAL, 2 IN THE MORNING, 2 IN THE AFTERNOON, 2 IN THE EVENING
     Route: 065
  8. Calonal tablets 200 [Concomitant]
     Indication: Pyrexia
  9. Calonal tablets 200 [Concomitant]
     Indication: Neuralgia
  10. Tarlige OD tablets 2.5mg [Concomitant]
     Indication: Neuralgia
     Dosage: 15 MINUTES AFTER BREAKFAST AND DINNER, 1 MORNING, 1 EVENING
     Route: 065
  11. Tarlige OD tablets 2.5mg [Concomitant]
     Route: 065
  12. Amitiza Capsules 24ug [Concomitant]
     Indication: Constipation
     Route: 065
  13. Oxycodone extended release tablets 5mg [Concomitant]
     Indication: Analgesic therapy
     Route: 065
  14. Oxycodone extended release tablets 5mg [Concomitant]
     Indication: Neuralgia
  15. Magnesium Oxide Tablets 250mg [Concomitant]
     Indication: Hyperchlorhydria
     Route: 065
  16. Magnesium Oxide Tablets 250mg [Concomitant]
     Indication: Constipation
  17. LEVOFLOXACIN [Concomitant]
     Active Substance: LEVOFLOXACIN
     Indication: Bacterial infection
     Route: 065
  18. Seltouch Paps 70 [Concomitant]
     Indication: Myalgia
     Dosage: PASTING
     Route: 065
  19. Seltouch Paps 70 [Concomitant]
     Indication: Arthralgia
  20. Pregabalin OD 75mg [Concomitant]
     Indication: Sedation
     Route: 065
  21. Dayvigo 5mg [Concomitant]
     Indication: Insomnia
     Route: 065
  22. CALCIUM CARBONATE\CHOLECALCIFEROL\MAGNESIUM CARBONATE [Concomitant]
     Active Substance: CALCIUM CARBONATE\CHOLECALCIFEROL\MAGNESIUM CARBONATE
     Indication: Mineral supplementation
     Route: 065
  23. Oxycodone tablets 2.5mg [Concomitant]
     Indication: Back pain
     Route: 048
  24. Oxycodone tablets 2.5mg [Concomitant]
     Indication: Chest pain

REACTIONS (42)
  - Metastases to bone [Unknown]
  - Immune system disorder [Unknown]
  - Gait disturbance [Unknown]
  - Weight decreased [Recovered/Resolved]
  - Decreased appetite [Unknown]
  - Cancer pain [Unknown]
  - Insomnia [Unknown]
  - Fatigue [Unknown]
  - Bacterial infection [Unknown]
  - C-reactive protein increased [Unknown]
  - Alopecia [Unknown]
  - Pyrexia [Recovered/Resolved]
  - Malaise [Unknown]
  - Apathy [Unknown]
  - Physical deconditioning [Unknown]
  - Male sexual dysfunction [Unknown]
  - Mental fatigue [Unknown]
  - Fatigue [Unknown]
  - Haemoglobin decreased [Unknown]
  - Renal impairment [Unknown]
  - Leukopenia [Unknown]
  - Thrombocytopenia [Unknown]
  - Constipation [Unknown]
  - Abdominal distension [Unknown]
  - Malaise [Unknown]
  - Decreased appetite [Unknown]
  - Post herpetic neuralgia [Unknown]
  - Dysstasia [Unknown]
  - Muscle atrophy [Unknown]
  - Muscular weakness [Unknown]
  - Exercise tolerance decreased [Unknown]
  - Hypoaesthesia [Unknown]
  - Movement disorder [Unknown]
  - Dizziness [Unknown]
  - Nausea [Unknown]
  - C-reactive protein increased [Unknown]
  - Middle insomnia [Unknown]
  - Irritability [Unknown]
  - Intercostal neuralgia [Unknown]
  - Back pain [Unknown]
  - Chest pain [Unknown]
  - Neoplasm progression [Unknown]

NARRATIVE: CASE EVENT DATE: 20240101
